FAERS Safety Report 6913448-8 (Version None)
Quarter: 2010Q3

REPORT INFORMATION
  Report Type: 
  Country: None (occurrence: None)
  Receive Date: 20100803
  Receipt Date: 20100713
  Transmission Date: 20110219
  Serious: Yes (Hospitalization)
  Sender: FDA-Public Use
  Company Number: 2010SP041510

PATIENT
  Age: 38 Year
  Sex: Female

DRUGS (3)
  1. PUREGON 50 UI/0.5 ML SOLUCION INYECTABLE (FOLLITROPIN BETA /01348901/) [Suspect]
     Indication: HORMONE THERAPY
     Dosage: SC
     Route: 058
     Dates: start: 20100507, end: 20100517
  2. OVITRELLE [Concomitant]
  3. SUPREFACT (BUSERELINE) [Concomitant]

REACTIONS (4)
  - ASCITES [None]
  - HYDROTHORAX [None]
  - HYPERTENSION [None]
  - OVARIAN HYPERSTIMULATION SYNDROME [None]
